FAERS Safety Report 9620076 (Version 1)
Quarter: 2013Q4

REPORT INFORMATION
  Report Type: Spontaneous
  Country: CA (occurrence: CA)
  Receive Date: 20131014
  Receipt Date: 20131014
  Transmission Date: 20140711
  Serious: Yes (Other)
  Sender: FDA-Public Use
  Company Number: CA-PFIZER INC-2013288089

PATIENT
  Age: 6 Decade
  Sex: Female

DRUGS (13)
  1. ATORVASTATIN CALCIUM [Suspect]
     Dosage: 800 MG, UNK
  2. VENLAFAXINE HCL [Suspect]
     Dosage: 159 MG, UNK
  3. LEVOTHYROXINE SODIUM [Suspect]
     Dosage: 10 MG, UNK
  4. FOSINOPRIL SODIUM [Suspect]
     Dosage: 10 MG, UNK
  5. DOMPERIDONE MALEATE [Suspect]
     Dosage: 10 MG, UNK
  6. LANTUS [Suspect]
     Dosage: UNK
  7. NOVORAPID [Suspect]
     Dosage: UNK
  8. VITAMIN B6 [Suspect]
     Dosage: UNK
  9. VITAMIN B12 [Suspect]
     Dosage: UNK
  10. IRON [Suspect]
     Dosage: HIGH DOSE
  11. VITAMIN C [Suspect]
     Dosage: UNK
  12. VITAMIN D [Suspect]
     Dosage: UNK
  13. VITAMIN FLUID CC [Suspect]
     Dosage: UNK

REACTIONS (8)
  - Type 1 diabetes mellitus [Unknown]
  - Mood swings [Unknown]
  - Anxiety [Unknown]
  - Feeling abnormal [Unknown]
  - Amnesia [Unknown]
  - Anaemia [Unknown]
  - Dry skin [Unknown]
  - Pruritus [Unknown]
